FAERS Safety Report 9767899 (Version 3)
Quarter: 2014Q1

REPORT INFORMATION
  Report Type: Spontaneous
  Country: US (occurrence: US)
  Receive Date: 20131217
  Receipt Date: 20140224
  Transmission Date: 20141002
  Serious: No
  Sender: FDA-Public Use
  Company Number: US-009507513-1311USA011880

PATIENT
  Age: 32 Year
  Sex: Male

DRUGS (2)
  1. ISENTRESS [Suspect]
     Indication: PROPHYLAXIS AGAINST HIV INFECTION
     Dosage: 1  400 MG, BID
     Route: 048
     Dates: start: 20131019, end: 20131024
  2. TRUVADA [Concomitant]

REACTIONS (5)
  - Blood pressure increased [Recovered/Resolved]
  - Hyperglycaemia [Recovered/Resolved]
  - Influenza like illness [Recovered/Resolved]
  - Pain [Recovered/Resolved]
  - Adverse drug reaction [Unknown]
